FAERS Safety Report 4716794-1 (Version None)
Quarter: 2005Q3

REPORT INFORMATION
  Report Type: 
  Country: None (occurrence: None)
  Receive Date: 20050719
  Receipt Date: 20050629
  Transmission Date: 20060218
  Serious: Yes (Other)
  Sender: FDA-Public Use
  Company Number: GB-GLAXOSMITHKLINE-B0386493A

PATIENT
  Sex: Female

DRUGS (4)
  1. PIRITON [Suspect]
     Indication: MULTIPLE ALLERGIES
     Route: 048
  2. CETIRIZINE HCL [Concomitant]
     Indication: MULTIPLE ALLERGIES
     Route: 048
  3. ZIRTEK [Concomitant]
     Indication: MULTIPLE ALLERGIES
     Route: 048
  4. STEROID [Concomitant]
     Indication: MULTIPLE ALLERGIES
     Route: 061

REACTIONS (8)
  - ANAPHYLACTIC REACTION [None]
  - DRUG ADMINISTRATION ERROR [None]
  - DYSPNOEA [None]
  - FEELING ABNORMAL [None]
  - LOSS OF CONSCIOUSNESS [None]
  - PALLOR [None]
  - PARAESTHESIA ORAL [None]
  - RESPIRATORY ARREST [None]
